FAERS Safety Report 8517378-X (Version None)
Quarter: 2012Q3

REPORT INFORMATION
  Report Type: 
  Country: None (occurrence: None)
  Receive Date: 20120718
  Receipt Date: 20120710
  Transmission Date: 20120928
  Serious: Yes (Other)
  Sender: FDA-Public Use
  Company Number: GB-VERTEX PHARMACEUTICALS INC.-000000000000000565

PATIENT
  Sex: Male

DRUGS (4)
  1. PEGINTERFERON ALFA-2B [Concomitant]
     Indication: HEPATITIS C
     Dates: start: 20120314
  2. TELAPREVIR [Suspect]
     Indication: HEPATITIS C
     Dosage: DOSAGE FORM: TABLET
     Route: 048
     Dates: start: 20120314
  3. RIBAVIRIN [Concomitant]
     Indication: HEPATITIS C
     Dates: start: 20120314
  4. WARFARIN SODIUM [Concomitant]
     Indication: HEPATITIS C

REACTIONS (12)
  - PAROSMIA [None]
  - FATIGUE [None]
  - VISUAL IMPAIRMENT [None]
  - SKIN ULCER [None]
  - PRURITUS [None]
  - HAEMOPTYSIS [None]
  - DRUG DOSE OMISSION [None]
  - DECREASED APPETITE [None]
  - NAUSEA [None]
  - RASH PRURITIC [None]
  - RASH [None]
  - PHOTOSENSITIVITY REACTION [None]
